FAERS Safety Report 25966141 (Version 1)
Quarter: 2025Q4

REPORT INFORMATION
  Report Type: Spontaneous
  Country: EU (occurrence: EU)
  Receive Date: 20251028
  Receipt Date: 20251028
  Transmission Date: 20260118
  Serious: Yes (Hospitalization)
  Sender: ABBVIE
  Company Number: None

PATIENT
  Age: 31 Year
  Sex: Male
  Weight: 52 kg

DRUGS (2)
  1. ADALIMUMAB [Suspect]
     Active Substance: ADALIMUMAB
     Indication: Crohn^s disease
     Dosage: FOA: SOLUTION FOR INJECTION IN PRE-FILLED PEN
     Route: 058
     Dates: start: 202210, end: 202308
  2. ADALIMUMAB [Suspect]
     Active Substance: ADALIMUMAB
     Indication: Ileal stenosis
     Dosage: FOA: SOLUTION FOR INJECTION IN PRE-FILLED PEN
     Route: 058
     Dates: start: 2023, end: 202401

REACTIONS (4)
  - Crohn^s disease [Unknown]
  - Paradoxical psoriasis [Recovered/Resolved]
  - Folliculitis [Unknown]
  - Gastrointestinal stenosis [Unknown]

NARRATIVE: CASE EVENT DATE: 20230711
